FAERS Safety Report 10558495 (Version 2)
Quarter: 2014Q4

REPORT INFORMATION
  Report Type: Spontaneous
  Country: DE (occurrence: DE)
  Receive Date: 20141031
  Receipt Date: 20141216
  Transmission Date: 20150529
  Serious: Yes (Life-Threatening, Hospitalization)
  Sender: FDA-Public Use
  Company Number: DE-JNJFOC-20141020964

PATIENT
  Age: 68 Year
  Sex: Male
  Weight: 78 kg

DRUGS (7)
  1. SURGICEL [Suspect]
     Active Substance: CELLULOSE, OXIDIZED
     Indication: HAEMOSTASIS
     Route: 061
     Dates: start: 20140724, end: 20140724
  2. LOCAL HAEMOSTATICS [Concomitant]
     Active Substance: UNSPECIFIED INGREDIENT
     Indication: HAEMOSTASIS
  3. CLEXANE [Suspect]
     Active Substance: ENOXAPARIN SODIUM
     Indication: ANTICOAGULANT THERAPY
     Dosage: POST-OPERATIVELY, AT NIGHT
     Route: 058
     Dates: start: 20140724, end: 20140724
  4. EVITHROM [Suspect]
     Active Substance: THROMBIN HUMAN
     Indication: HAEMOSTASIS
     Route: 061
     Dates: start: 20140724, end: 20140724
  5. CLEXANE [Suspect]
     Active Substance: ENOXAPARIN SODIUM
     Indication: ANTIPLATELET THERAPY
     Dosage: POST-OPERATIVELY, AT NIGHT
     Route: 058
     Dates: start: 20140724, end: 20140724
  6. CLEXANE [Suspect]
     Active Substance: ENOXAPARIN SODIUM
     Indication: ANTICOAGULANT THERAPY
     Dosage: PRE-OPERATIVELY
     Route: 058
     Dates: start: 20140723, end: 20140723
  7. CLEXANE [Suspect]
     Active Substance: ENOXAPARIN SODIUM
     Indication: ANTIPLATELET THERAPY
     Dosage: PRE-OPERATIVELY
     Route: 058
     Dates: start: 20140723, end: 20140723

REACTIONS (7)
  - Shock haemorrhagic [Unknown]
  - Post procedural haemorrhage [Not Recovered/Not Resolved]
  - Asthenia [Not Recovered/Not Resolved]
  - General physical health deterioration [Not Recovered/Not Resolved]
  - Malaise [Unknown]
  - Polyneuropathy [Unknown]
  - Dysphagia [Unknown]

NARRATIVE: CASE EVENT DATE: 20140725
